FAERS Safety Report 6608301-3 (Version None)
Quarter: 2010Q1

REPORT INFORMATION
  Report Type: 
  Country: None (occurrence: None)
  Receive Date: 20100301
  Receipt Date: 20100219
  Transmission Date: 20100710
  Serious: Yes (Hospitalization)
  Sender: FDA-Public Use
  Company Number: US-ASTRAZENECA-2010SE07650

PATIENT
  Age: 173 Month
  Sex: Male
  Weight: 70.8 kg

DRUGS (2)
  1. SEROQUEL [Suspect]
     Indication: SCHIZOAFFECTIVE DISORDER BIPOLAR TYPE
     Route: 048
     Dates: start: 20080101
  2. SEROQUEL [Suspect]
     Route: 048

REACTIONS (10)
  - DRUG DOSE OMISSION [None]
  - DYSPNOEA [None]
  - EATING DISORDER [None]
  - INSOMNIA [None]
  - INTENTIONAL SELF-INJURY [None]
  - IRRITABILITY [None]
  - LOSS OF CONSCIOUSNESS [None]
  - MENTAL DISORDER [None]
  - SLEEP DISORDER [None]
  - SOMNOLENCE [None]
